FAERS Safety Report 5216912-5 (Version None)
Quarter: 2007Q1

REPORT INFORMATION
  Report Type: 
  Country: None (occurrence: None)
  Receive Date: 20070119
  Receipt Date: 20070115
  Transmission Date: 20070707
  Serious: Yes (Death, Hospitalization)
  Sender: FDA-Public Use
  Company Number: L06-GER-03825-01

PATIENT
  Age: 42 Year
  Sex: Female

DRUGS (3)
  1. CITALOPRAM HYDROBROMIDE [Suspect]
     Indication: COMPLETED SUICIDE
     Dosage: 1200 MG ONCE PO
     Route: 048
  2. MOCLOBEMIDE [Suspect]
     Indication: COMPLETED SUICIDE
     Dosage: 6000 MG ONCE PO
     Route: 048
  3. VODKA (ALCOHOL0 [Suspect]
     Indication: COMPLETED SUICIDE
     Dosage: 500 ML ONCE PO
     Route: 048

REACTIONS (36)
  - BLOOD POTASSIUM INCREASED [None]
  - BODY TEMPERATURE INCREASED [None]
  - BRADYCARDIA [None]
  - CARDIAC ARREST [None]
  - CATHETER SITE HAEMATOMA [None]
  - CIRCULATORY COLLAPSE [None]
  - COMPLETED SUICIDE [None]
  - CONVULSION [None]
  - CORNEAL REFLEX DECREASED [None]
  - DISORIENTATION [None]
  - DISSEMINATED INTRAVASCULAR COAGULATION [None]
  - ELECTROCARDIOGRAM ABNORMAL [None]
  - ELECTROCARDIOGRAM QRS COMPLEX ABNORMAL [None]
  - ELECTROCARDIOGRAM QT CORRECTED INTERVAL PROLONGED [None]
  - EPISTAXIS [None]
  - GASTRIC HAEMORRHAGE [None]
  - HAEMATOMA [None]
  - HAEMODYNAMIC INSTABILITY [None]
  - HYPERHIDROSIS [None]
  - HYPERTHERMIA [None]
  - HYPERTONIA [None]
  - HYPOVOLAEMIA [None]
  - MOUTH HAEMORRHAGE [None]
  - MULTI-ORGAN FAILURE [None]
  - MULTIPLE DRUG OVERDOSE INTENTIONAL [None]
  - MYDRIASIS [None]
  - NAUSEA [None]
  - PALLOR [None]
  - PERIPHERAL VASCULAR DISORDER [None]
  - PUPILLARY DISORDER [None]
  - SEROTONIN SYNDROME [None]
  - SOMNOLENCE [None]
  - TACHYCARDIA [None]
  - TRISMUS [None]
  - VENTRICULAR TACHYCARDIA [None]
  - VOMITING [None]
